FAERS Safety Report 6576663-1 (Version None)
Quarter: 2010Q1

REPORT INFORMATION
  Report Type: 
  Country: None (occurrence: None)
  Receive Date: 20100210
  Receipt Date: 20100202
  Transmission Date: 20100710
  Serious: Yes (Hospitalization, Other)
  Sender: FDA-Public Use
  Company Number: US-PFIZER INC-2010001011

PATIENT
  Sex: Female

DRUGS (4)
  1. LYRICA [Suspect]
     Indication: MUSCLE SPASMS
     Dosage: UNK
     Route: 048
     Dates: start: 20060101, end: 20090101
  2. LYRICA [Suspect]
     Indication: FIBROMYALGIA
  3. OXYCODONE HCL [Concomitant]
     Indication: PAIN
  4. ZANAFLEX [Concomitant]

REACTIONS (10)
  - C-REACTIVE PROTEIN INCREASED [None]
  - CONFUSIONAL STATE [None]
  - CONVULSION [None]
  - HEADACHE [None]
  - INFLAMMATION [None]
  - OEDEMA PERIPHERAL [None]
  - POSTICTAL STATE [None]
  - RED BLOOD CELL SEDIMENTATION RATE INCREASED [None]
  - WEIGHT DECREASED [None]
  - WEIGHT INCREASED [None]
